FAERS Safety Report 9165541 (Version 1)
Quarter: 2013Q1

REPORT INFORMATION
  Report Type: Spontaneous
  Country: US (occurrence: US)
  Receive Date: 20130315
  Receipt Date: 20130315
  Transmission Date: 20140127
  Serious: No
  Sender: FDA-Public Use
  Company Number: US-BAYER-2013-032356

PATIENT
  Age: 65 Year
  Sex: Female

DRUGS (3)
  1. ALEVE [Suspect]
     Dosage: 2 DF, QD
     Route: 048
     Dates: start: 2012
  2. SUGAR PILL FOR DIABETES [Concomitant]
  3. ANTIHYPERTENSIVES [Concomitant]

REACTIONS (1)
  - Incorrect drug administration duration [None]
